FAERS Safety Report 21537566 (Version 4)
Quarter: 2022Q4

REPORT INFORMATION
  Report Type: Report from Study
  Country: US (occurrence: US)
  Receive Date: 20221101
  Receipt Date: 20221114
  Transmission Date: 20230113
  Serious: No
  Sender: FDA-Public Use
  Company Number: US-SANOFI-01329189

PATIENT
  Age: 50 Year
  Sex: Female

DRUGS (6)
  1. DUPIXENT [Suspect]
     Active Substance: DUPILUMAB
     Indication: Dermatitis atopic
     Dosage: 300 MG, QOW
     Dates: start: 2020
  2. DUPIXENT [Suspect]
     Active Substance: DUPILUMAB
     Indication: Skin disorder
  3. DUPIXENT [Suspect]
     Active Substance: DUPILUMAB
     Indication: Illness
  4. DUPILUMAB [Suspect]
     Active Substance: DUPILUMAB
     Indication: Dermatitis atopic
     Dosage: 300 MG, QOW
     Dates: start: 2020
  5. DUPILUMAB [Suspect]
     Active Substance: DUPILUMAB
     Indication: Skin disorder
  6. DUPILUMAB [Suspect]
     Active Substance: DUPILUMAB
     Indication: Illness

REACTIONS (6)
  - Skin disorder [Unknown]
  - Condition aggravated [Unknown]
  - Dysphonia [Unknown]
  - Cough [Unknown]
  - Malaise [Unknown]
  - Aphonia [Unknown]
